FAERS Safety Report 9839259 (Version 1)
Quarter: 2014Q1

REPORT INFORMATION
  Report Type: Spontaneous
  Country: US (occurrence: None)
  Receive Date: 20140116
  Receipt Date: 20140116
  Transmission Date: 20141002
  Serious: Yes (Hospitalization)
  Sender: FDA-Public Use
  Company Number: SYM-2014-14888

PATIENT
  Sex: Female

DRUGS (1)
  1. EFUDEX [Suspect]
     Indication: BENIGN NEOPLASM OF SKIN
     Dosage: 2 IN1 D, TOPICAL
     Route: 061
     Dates: start: 200905, end: 2009

REACTIONS (14)
  - Dyspnoea [None]
  - Atrial fibrillation [None]
  - Abdominal discomfort [None]
  - Fluid retention [None]
  - Local swelling [None]
  - Paraesthesia [None]
  - Pain in extremity [None]
  - Constipation [None]
  - Dementia [None]
  - Hallucination [None]
  - Gait disturbance [None]
  - Speech disorder [None]
  - Diarrhoea [None]
  - Vitamin B1 deficiency [None]
